FAERS Safety Report 15983679 (Version 1)
Quarter: 2019Q1

REPORT INFORMATION
  Report Type: Spontaneous
  Country: US (occurrence: US)
  Receive Date: 20190126
  Receipt Date: 20190126
  Transmission Date: 20190418
  Serious: Yes (Hospitalization)
  Sender: FDA-Public Use
  Company Number: None

PATIENT
  Age: 51 Year
  Sex: Female
  Weight: 43.5 kg

DRUGS (3)
  1. 5-FLUOROURACIL [Suspect]
     Active Substance: FLUOROURACIL
     Dates: end: 20190113
  2. ELOXATIN [Concomitant]
     Active Substance: OXALIPLATIN
     Dates: end: 20190111
  3. LEUCOVORIN. [Concomitant]
     Active Substance: LEUCOVORIN
     Dates: end: 20190111

REACTIONS (4)
  - Infection [None]
  - Computerised tomogram abnormal [None]
  - Abscess [None]
  - Abdominal pain [None]

NARRATIVE: CASE EVENT DATE: 20190118
